FAERS Safety Report 23630714 (Version 1)
Quarter: 2024Q1

REPORT INFORMATION
  Report Type: Spontaneous
  Country: US (occurrence: US)
  Receive Date: 20240314
  Receipt Date: 20240314
  Transmission Date: 20240409
  Serious: Yes (Hospitalization)
  Sender: FDA-Public Use
  Company Number: US-STRIDES ARCOLAB LIMITED-2024SP002978

PATIENT
  Age: 80 Year
  Sex: Male

DRUGS (1)
  1. HYDROCODONE BITARTRATE AND ACETAMINOPHEN [Suspect]
     Active Substance: ACETAMINOPHEN\HYDROCODONE BITARTRATE
     Indication: Pain
     Dosage: UNK, THE PATIENT TOOK AN OVERDOSE OF HYDROCODONE/PARACETAMOL FOR A SUICIDE ATTEMPT.
     Route: 048

REACTIONS (5)
  - Suicide attempt [Unknown]
  - Encephalopathy [Unknown]
  - Vomiting [Unknown]
  - Toxicity to various agents [Unknown]
  - Overdose [Unknown]
